FAERS Safety Report 20184366 (Version 1)
Quarter: 2021Q4

REPORT INFORMATION
  Report Type: Spontaneous
  Country: US (occurrence: US)
  Receive Date: 20211214
  Receipt Date: 20211214
  Transmission Date: 20220304
  Serious: No
  Sender: FDA-Public Use
  Company Number: US-REGENERON PHARMACEUTICALS, INC.-2020-97724

PATIENT

DRUGS (5)
  1. EYLEA [Suspect]
     Active Substance: AFLIBERCEPT
     Indication: Neovascular age-related macular degeneration
     Dosage: 2 MG, RIGHT EYE, ONE MONTH
     Route: 031
     Dates: start: 20171020
  2. EYLEA [Suspect]
     Active Substance: AFLIBERCEPT
     Indication: Choroidal neovascularisation
     Dosage: 2MG. RIGHT EYE, ONE MONTH
     Route: 031
     Dates: start: 20171204, end: 20171204
  3. EYLEA [Suspect]
     Active Substance: AFLIBERCEPT
     Dosage: 2MG. RIGHT EYE, 6 WEEKS
     Route: 031
     Dates: start: 20181029, end: 20181029
  4. EYLEA [Suspect]
     Active Substance: AFLIBERCEPT
     Dosage: 2MG, RIGHT EYE, 7 WEEKS
     Route: 031
     Dates: start: 20181203, end: 20181203
  5. EYLEA [Suspect]
     Active Substance: AFLIBERCEPT
     Dosage: 2MG, RIGHT EYE, 4 WEEKS
     Route: 031
     Dates: start: 20201207, end: 20201207

REACTIONS (2)
  - Product dose omission issue [Unknown]
  - Eye injury [Unknown]

NARRATIVE: CASE EVENT DATE: 20201207
